FAERS Safety Report 9506090 (Version 1)
Quarter: 2013Q1

REPORT INFORMATION
  Report Type: Spontaneous
  Country: US (occurrence: None)
  Receive Date: 20130305
  Receipt Date: 20130305
  Transmission Date: 20140127
  Serious: No
  Sender: FDA-Public Use
  Company Number: 1000039359

PATIENT
  Age: 79 Year
  Sex: Female

DRUGS (6)
  1. DALIRESP (ROFLUMILAST) (500 MICROGRAM, TABLETS) [Suspect]
     Indication: CHRONIC OBSTRUCTIVE PULMONARY DISEASE
     Dosage: ( 500 MCG, 1 IN 1 D), ORAL
     Route: 048
     Dates: start: 20121010
  2. PRAVASTATIN (PRAVASTATIN) (PRAVASTATIN) [Concomitant]
  3. LISNIOPRIL (LISINOPRIL) (LISINOPRIL) [Concomitant]
  4. ASPIRIN (ACETYLSALICYLIC ACID) (ACETYLSALICYLIC ACID) [Concomitant]
  5. SYMBICORT (BUDESONIDE W/FORMOTEROL FUMARATE) (BUDESONIDE W/FORMOTEROL FUMARATE) [Concomitant]
  6. PROAIR (ALBUTEROL) (ALBUTEROL) [Concomitant]

REACTIONS (2)
  - Headache [None]
  - Diarrhoea [None]
